FAERS Safety Report 24221280 (Version 1)
Quarter: 2024Q3

REPORT INFORMATION
  Report Type: Spontaneous
  Country: EG (occurrence: EG)
  Receive Date: 20240819
  Receipt Date: 20240819
  Transmission Date: 20241017
  Serious: Yes (Hospitalization, Other)
  Sender: NOVO NORDISK
  Company Number: EG-NOVOPROD-1266525

PATIENT
  Age: 840 Month
  Sex: Female
  Weight: 83 kg

DRUGS (1)
  1. NOVORAPID [Suspect]
     Active Substance: INSULIN ASPART
     Indication: Diabetes mellitus
     Dosage: 70 IU, QD (30 U AT NIGHT /20 U AT BREAKFAST /20 U LUNCH)
     Route: 058

REACTIONS (4)
  - Ulcer [Unknown]
  - Contusion [Unknown]
  - Road traffic accident [Not Recovered/Not Resolved]
  - Gait inability [Not Recovered/Not Resolved]

NARRATIVE: CASE EVENT DATE: 20220101
